FAERS Safety Report 23084950 (Version 1)
Quarter: 2023Q4

REPORT INFORMATION
  Report Type: Spontaneous
  Country: IL (occurrence: IL)
  Receive Date: 20231019
  Receipt Date: 20231019
  Transmission Date: 20240109
  Serious: Yes (Other)
  Sender: FDA-Public Use
  Company Number: IL-002147023-NVSC2023IL222085

PATIENT
  Age: 72 Year
  Sex: Female

DRUGS (1)
  1. ERELZI [Suspect]
     Active Substance: ETANERCEPT-SZZS
     Indication: Product used for unknown indication
     Dosage: 50
     Route: 065

REACTIONS (5)
  - Eczema [Unknown]
  - Wound [Unknown]
  - Rash [Unknown]
  - Psoriasis [Unknown]
  - Pruritus [Unknown]
